FAERS Safety Report 7197573-5 (Version None)
Quarter: 2010Q4

REPORT INFORMATION
  Report Type: 
  Country: None (occurrence: None)
  Receive Date: 20101227
  Receipt Date: 20101215
  Transmission Date: 20110411
  Serious: Yes (Hospitalization)
  Sender: FDA-Public Use
  Company Number: JP-JNJFOC-20061202580

PATIENT
  Sex: Male

DRUGS (19)
  1. LEUSTATIN [Suspect]
     Indication: HAIRY CELL LEUKAEMIA
     Route: 041
  2. ISCOTIN [Suspect]
     Indication: INFECTION PROPHYLAXIS
     Route: 048
  3. ADALAT CC [Concomitant]
     Indication: HYPERTENSION
     Route: 048
  4. DIOVAN [Concomitant]
     Indication: HYPERTENSION
     Route: 048
  5. SELBEX [Concomitant]
     Indication: GASTRITIS
     Route: 048
  6. ZYLORIC [Concomitant]
     Indication: HYPERURICAEMIA
     Route: 048
  7. BAKTAR [Concomitant]
     Indication: INFECTION PROPHYLAXIS
     Route: 048
  8. JUSO [Concomitant]
     Indication: METABOLIC ACIDOSIS
     Route: 048
  9. PRIMPERAN TAB [Concomitant]
     Indication: NAUSEA
     Route: 048
  10. TAVEGYL [Concomitant]
     Indication: PRURITUS
     Route: 048
  11. SOLU-MEDROL [Concomitant]
     Indication: RASH
     Route: 041
  12. PREDONINE [Concomitant]
     Indication: RASH
     Route: 048
  13. PREDONINE [Concomitant]
     Route: 048
  14. PREDONINE [Concomitant]
     Route: 048
  15. GLYCYRRHIZIC ACID/GLYCINE/CYSTEINE [Concomitant]
     Indication: RASH
     Route: 042
  16. URSO 250 [Concomitant]
     Indication: LIVER DISORDER
     Route: 048
  17. GLUCAGON [Concomitant]
     Indication: JAUNDICE
     Route: 041
  18. HUMULIN R [Concomitant]
     Indication: JAUNDICE
     Dosage: 10 LU
     Route: 041
  19. ATARAX [Concomitant]
     Indication: PRURITUS
     Dosage: 10 LU
     Route: 048

REACTIONS (8)
  - ANAEMIA [None]
  - JAUNDICE [None]
  - LIVER DISORDER [None]
  - PLATELET COUNT DECREASED [None]
  - PROTEIN TOTAL DECREASED [None]
  - RASH [None]
  - RENAL IMPAIRMENT [None]
  - WHITE BLOOD CELL COUNT DECREASED [None]
